FAERS Safety Report 8758957 (Version 2)
Quarter: 2013Q4

REPORT INFORMATION
  Report Type: Spontaneous
  Country: US (occurrence: US)
  Receive Date: 20120829
  Receipt Date: 20131101
  Transmission Date: 20140711
  Serious: No
  Sender: FDA-Public Use
  Company Number: US-009507513-1208USA009304

PATIENT
  Age: 61 Year
  Sex: Female
  Weight: 82.99 kg

DRUGS (10)
  1. VICTRELIS [Suspect]
     Dosage: 4 CAPSULES (800 MG), TID, WITH FOOD
     Route: 048
  2. REBETOL [Suspect]
     Route: 048
  3. PEGASYS [Concomitant]
     Dosage: KIT
     Route: 058
  4. METHADONE HYDROCHLORIDE [Concomitant]
     Dosage: 10 MG/5 ML
     Route: 048
  5. PROVENTIL [Concomitant]
     Route: 055
  6. CLONAZEPAM [Concomitant]
     Route: 048
  7. CLONIDINE [Concomitant]
     Route: 048
  8. CLARITIN [Concomitant]
     Route: 048
  9. HYDROCORT [Concomitant]
  10. TYLENOL 8 HOUR EXTENDED RELEASE [Concomitant]
     Route: 048

REACTIONS (3)
  - Visual impairment [Unknown]
  - Dysgeusia [Unknown]
  - Back pain [Unknown]
